FAERS Safety Report 15022955 (Version 9)
Quarter: 2019Q1

REPORT INFORMATION
  Report Type: Spontaneous
  Country: DE (occurrence: DE)
  Receive Date: 20180618
  Receipt Date: 20190306
  Transmission Date: 20190417
  Serious: Yes (Death, Life-Threatening, Hospitalization, Other)
  Sender: FDA-Public Use
  Company Number: DE-BRISTOL-MYERS SQUIBB COMPANY-BMS-2018-054027

PATIENT
  Age: 73 Year
  Sex: Female
  Weight: 60 kg

DRUGS (43)
  1. AMPHOTERICIN B. [Suspect]
     Active Substance: AMPHOTERICIN B
     Indication: ANTIFUNGAL PROPHYLAXIS
     Dosage: 8 DF=200 MG, UNK
     Route: 048
     Dates: start: 20010703, end: 20010714
  2. PLAVIX [Suspect]
     Active Substance: CLOPIDOGREL BISULFATE
     Indication: CORONARY ARTERY DISEASE
     Dosage: 75 MG, UNK
     Route: 048
     Dates: start: 20010704, end: 20010714
  3. PARACETAMOL [Suspect]
     Active Substance: ACETAMINOPHEN
     Indication: PAIN
     Dosage: 500 MG, UNK
     Route: 048
     Dates: start: 20010711, end: 20010711
  4. ASPIRIN                            /00002701/ [Suspect]
     Active Substance: ASPIRIN
     Indication: CORONARY ARTERY DISEASE
     Dosage: 100 MG, UNK
     Route: 048
     Dates: start: 20010616, end: 20010714
  5. CIPROFLOXACIN HYDROCHLORIDE. [Suspect]
     Active Substance: CIPROFLOXACIN HYDROCHLORIDE
     Indication: CHOLECYSTITIS
     Dosage: 500 MG, BID
     Route: 048
     Dates: start: 20010620, end: 20010628
  6. FRAGMIN [Suspect]
     Active Substance: DALTEPARIN SODIUM
     Indication: THROMBOSIS PROPHYLAXIS
     Dosage: 2500 IU, UNK
     Route: 058
     Dates: start: 20010703, end: 20010714
  7. DIAZEPAM. [Suspect]
     Active Substance: DIAZEPAM
     Indication: RESTLESSNESS
     Dosage: 5 MG, UNK
     Route: 048
     Dates: start: 20010616, end: 20010703
  8. HALDOL [Concomitant]
     Active Substance: HALOPERIDOL
     Indication: RESTLESSNESS
     Dosage: UNK
     Route: 016
     Dates: start: 20010713, end: 20010714
  9. BROMAZEPAM [Concomitant]
     Active Substance: BROMAZEPAM
     Indication: PRODUCT USED FOR UNKNOWN INDICATION
     Dosage: UNK
     Route: 065
     Dates: start: 20010713, end: 20010714
  10. DIGOXIN. [Suspect]
     Active Substance: DIGOXIN
     Indication: CORONARY ARTERY DISEASE
     Dosage: 0.2 MG, QD
     Route: 048
     Dates: start: 20010703, end: 20010714
  11. CIPROFLOXACIN HYDROCHLORIDE. [Suspect]
     Active Substance: CIPROFLOXACIN HYDROCHLORIDE
     Indication: PRODUCT USED FOR UNKNOWN INDICATION
     Dosage: 250 MG, BID
     Route: 048
     Dates: start: 20010710, end: 20010711
  12. NORVASC [Suspect]
     Active Substance: AMLODIPINE BESYLATE
     Indication: CORONARY ARTERY DISEASE
     Dosage: 5 MG, QD
     Route: 048
     Dates: start: 20010703, end: 20010714
  13. METOCLOPRAMIDE. [Suspect]
     Active Substance: METOCLOPRAMIDE
     Indication: NAUSEA
     Dosage: 7 MG, 1D
     Route: 048
     Dates: start: 20010704, end: 20010712
  14. CAPTOPRIL. [Suspect]
     Active Substance: CAPTOPRIL
     Indication: PRODUCT USED FOR UNKNOWN INDICATION
     Dosage: UNK
     Route: 048
     Dates: start: 20010714, end: 20010716
  15. AMARYL [Suspect]
     Active Substance: GLIMEPIRIDE
     Indication: DIABETES MELLITUS
     Dosage: 3 MG, UNK
     Route: 048
     Dates: start: 20010616, end: 20010703
  16. LANTUS [Concomitant]
     Active Substance: INSULIN GLARGINE
     Indication: DIABETES MELLITUS
     Dosage: 16 IU, UNK
     Route: 058
     Dates: start: 20010616, end: 20010629
  17. DIPOTASSIUM CLORAZEPATE [Suspect]
     Active Substance: CLORAZEPATE DIPOTASSIUM
     Indication: RESTLESSNESS
     Dosage: 10 MG, UNK
     Route: 048
     Dates: start: 20010710, end: 20010714
  18. EUNERPAN [Suspect]
     Active Substance: MELPERONE HYDROCHLORIDE
     Indication: RESTLESSNESS
     Dosage: 16 ML, 1D
     Route: 048
     Dates: start: 20010706, end: 20010712
  19. CARBIMAZOLE [Suspect]
     Active Substance: CARBIMAZOLE
     Indication: PRODUCT USED FOR UNKNOWN INDICATION
     Dosage: UNK
     Route: 065
  20. AMPHOTERICIN B. [Suspect]
     Active Substance: AMPHOTERICIN B
     Indication: PROPHYLAXIS
     Dosage: UNK
     Route: 065
  21. TRANXENE [Suspect]
     Active Substance: CLORAZEPATE DIPOTASSIUM
     Indication: RESTLESSNESS
     Dosage: 10 MG/DAY
     Route: 065
     Dates: start: 20010710, end: 20010714
  22. ZAROXOLYN [Suspect]
     Active Substance: METOLAZONE
     Indication: HYPERTENSION
     Dosage: 2 MG, UNK
     Route: 048
     Dates: start: 20010712, end: 20010713
  23. DECORTIN [Suspect]
     Active Substance: PREDNISONE
     Indication: RESTLESSNESS
     Route: 065
  24. CONCOR [Suspect]
     Active Substance: BISOPROLOL FUMARATE
     Indication: CORONARY ARTERY DISEASE
     Dosage: 8 MG, UNK
     Route: 048
     Dates: start: 20010616, end: 20010714
  25. SORTIS [Suspect]
     Active Substance: ATORVASTATIN
     Indication: HYPERLIPIDAEMIA
     Dosage: 20 MG, UNK
     Route: 048
     Dates: start: 20010616, end: 20010703
  26. METFORMIN HYDROCHLORIDE. [Suspect]
     Active Substance: METFORMIN HYDROCHLORIDE
     Indication: CORONARY ARTERY DISEASE
     Dosage: 7 MG, UNK
     Route: 048
  27. LASIX [Suspect]
     Active Substance: FUROSEMIDE
     Indication: HYPERTENSION
     Dosage: 120 MG, UNK
     Route: 042
     Dates: start: 20010703, end: 20010714
  28. NOVODIGAL                          /00017701/ [Suspect]
     Active Substance: DIGOXIN
     Indication: CORONARY ARTERY DISEASE
     Dosage: UNK
     Route: 048
  29. DECORTIN [Suspect]
     Active Substance: PREDNISONE
     Indication: DYSPNOEA
     Dosage: 50 MG, QD
     Route: 042
     Dates: start: 20010703, end: 20010703
  30. CAPTOPRIL. [Suspect]
     Active Substance: CAPTOPRIL
     Indication: CORONARY ARTERY DISEASE
     Dosage: UNK
     Route: 048
     Dates: start: 20010616, end: 20010714
  31. POTASSIUM CHLORIDE. [Concomitant]
     Active Substance: POTASSIUM CHLORIDE
     Indication: PRODUCT USED FOR UNKNOWN INDICATION
     Dosage: UNK
     Route: 065
     Dates: start: 20010703, end: 20010714
  32. PREDNISOLONE SODIUM SUCCINATE [Suspect]
     Active Substance: PREDNISOLONE SODIUM SUCCINATE
     Indication: DYSPNOEA
     Dosage: 50 MG, QD
     Route: 042
     Dates: start: 20010703, end: 20010703
  33. ROCEPHIN [Suspect]
     Active Substance: CEFTRIAXONE SODIUM
     Indication: PYREXIA
     Dosage: 1 G, BID
     Route: 042
     Dates: start: 20010629, end: 20010703
  34. ISOSORBIDE MONONITRATE. [Suspect]
     Active Substance: ISOSORBIDE MONONITRATE
     Indication: CORONARY ARTERY DISEASE
     Dosage: UNK
     Route: 048
     Dates: start: 20010703, end: 20010714
  35. IRENAT [Suspect]
     Active Substance: SODIUM PERCHLORATE
     Indication: HYPERTHYROIDISM
     Dosage: 688 MG, UNK
     Route: 048
     Dates: start: 20010618, end: 20010714
  36. PANTOZOL [Suspect]
     Active Substance: PANTOPRAZOLE SODIUM
     Indication: PROPHYLAXIS
     Dosage: 40 MG, QD
     Route: 048
     Dates: start: 20010616, end: 20010714
  37. BISOPROLOL FUMARATE. [Suspect]
     Active Substance: BISOPROLOL FUMARATE
     Indication: CORONARY ARTERY DISEASE
     Dosage: 8 MG, UNK
     Route: 065
     Dates: start: 20010616, end: 20010714
  38. METFORMIN HYDROCHLORIDE. [Suspect]
     Active Substance: METFORMIN HYDROCHLORIDE
     Indication: DIABETES MELLITUS
     Dosage: 250 MG, UNK
     Route: 048
     Dates: start: 20010616, end: 20010714
  39. PREDNISOLONE SODIUM SUCCINATE [Suspect]
     Active Substance: PREDNISOLONE SODIUM SUCCINATE
     Indication: PRODUCT USED FOR UNKNOWN INDICATION
     Dosage: UNK
     Route: 065
  40. MOLSIDOMINE [Suspect]
     Active Substance: MOLSIDOMINE
     Indication: CORONARY ARTERY DISEASE
     Dosage: 8 MG ONCE DAILY (DOSE REDUCED FROM 16 TO 8 MG DAILY)
     Route: 048
     Dates: start: 20010703
  41. PERENTEROL [Suspect]
     Active Substance: SACCHAROMYCES CEREVISIAE
     Indication: DIARRHOEA
     Dosage: 1 DF=100 TO 300 MG, UNK
     Route: 048
     Dates: start: 20010711, end: 20010714
  42. CARBIMAZOLE [Suspect]
     Active Substance: CARBIMAZOLE
     Indication: HYPERTHYROIDISM
     Dosage: 1 DF, UNK
     Route: 048
     Dates: start: 20010621, end: 20010714
  43. RAMIPRIL. [Suspect]
     Active Substance: RAMIPRIL
     Indication: CORONARY ARTERY DISEASE
     Dosage: 10 MG, QD
     Route: 048
     Dates: start: 20010616, end: 20010714

REACTIONS (13)
  - Cholecystitis [Fatal]
  - Blister [Unknown]
  - Dermatitis exfoliative [Unknown]
  - Respiratory disorder [Fatal]
  - Cholelithiasis [Fatal]
  - Erythema [Unknown]
  - Nausea [Fatal]
  - Multiple organ dysfunction syndrome [Fatal]
  - Restlessness [Fatal]
  - Electrolyte imbalance [Fatal]
  - Hyperthyroidism [Fatal]
  - Toxic epidermal necrolysis [Fatal]
  - Diarrhoea [Fatal]

NARRATIVE: CASE EVENT DATE: 20010703
